FAERS Safety Report 20059534 (Version 11)
Quarter: 2022Q1

REPORT INFORMATION
  Report Type: Report from Study
  Country: MX (occurrence: None)
  Receive Date: 20211111
  Receipt Date: 20220328
  Transmission Date: 20220423
  Serious: Yes (Death, Hospitalization)
  Sender: FDA-Public Use
  Company Number: MX-ROCHE-2949651

PATIENT
  Age: 46 Year
  Sex: Female
  Weight: 93.5 kg

DRUGS (17)
  1. ATEZOLIZUMAB [Suspect]
     Active Substance: ATEZOLIZUMAB
     Indication: Malignant neoplasm of unknown primary site
     Dosage: DATE OF LAST DOSE OF TREATMENT STUDY DRUG 1 ADMINISTERED PRIOR TO SAE/AESI ONSET ON 02/SEP/2021
     Route: 041
     Dates: start: 20210409
  2. GEMCITABINE [Suspect]
     Active Substance: GEMCITABINE
     Indication: Malignant neoplasm of unknown primary site
     Dosage: DATE OF LAST DOSE OF INDUCTION STUDY DRUG 2 ADMINISTERED PRIOR TO SAE/AESI ONSET ON 05/MAR/2021 WITH
     Route: 042
     Dates: start: 20210115
  3. GEMCITABINE [Suspect]
     Active Substance: GEMCITABINE
     Dosage: DATE OF LAST DOSE 1920 MG OF TREATMENT STUDY DRUG 2 ADMINISTERED PRIOR TO SAE/AESI ONSET ON 20/AUG/2
     Route: 042
     Dates: start: 20210409
  4. CARBOPLATIN [Suspect]
     Active Substance: CARBOPLATIN
     Indication: Malignant neoplasm of unknown primary site
     Dosage: AT THE AREA UNDER THE CURVE (AUC) DOSE ?ON 05/FEB/2021 LAST DOSE OF 625 MG WAS ADMINISTERED PRIOR TO
     Route: 042
     Dates: start: 20210115
  5. ACETAMINOPHEN [Concomitant]
     Active Substance: ACETAMINOPHEN
     Indication: Back pain
     Route: 048
     Dates: start: 20210403, end: 20210609
  6. ACETAMINOPHEN [Concomitant]
     Active Substance: ACETAMINOPHEN
     Indication: Arthralgia
     Route: 048
     Dates: start: 20210623
  7. LEVOTHYROXINE [Concomitant]
     Active Substance: LEVOTHYROXINE
     Route: 048
     Dates: start: 20210405
  8. KETOROLAC [Concomitant]
     Active Substance: KETOROLAC TROMETHAMINE
     Indication: Upper respiratory tract infection
     Route: 042
     Dates: start: 20210427
  9. KETOROLAC [Concomitant]
     Active Substance: KETOROLAC TROMETHAMINE
     Route: 042
     Dates: start: 20211005, end: 20211005
  10. PREDNISONE [Concomitant]
     Active Substance: PREDNISONE
     Indication: Thrombocytopenia
     Route: 048
     Dates: start: 20210924, end: 20211005
  11. PREDNISONE [Concomitant]
     Active Substance: PREDNISONE
     Route: 048
     Dates: start: 20211006, end: 20211027
  12. PREDNISONE [Concomitant]
     Active Substance: PREDNISONE
     Route: 048
     Dates: start: 20211027
  13. ERYTHROPOIETIN [Concomitant]
     Active Substance: ERYTHROPOIETIN
     Indication: Anaemia
     Dosage: 1000UNIT
     Route: 058
     Dates: start: 20210924
  14. MELOXICAM [Concomitant]
     Active Substance: MELOXICAM
     Indication: Back pain
     Route: 048
     Dates: start: 20211006, end: 20211008
  15. PAROXETINE [Concomitant]
     Active Substance: PAROXETINE
     Indication: Back pain
     Route: 048
     Dates: start: 20211006, end: 20211027
  16. DEXAMETHASONE [Concomitant]
     Active Substance: DEXAMETHASONE
     Indication: Pain
     Route: 042
     Dates: start: 20211005, end: 20211005
  17. LYSINE CLONIXINATE [Concomitant]
     Indication: Back pain
     Route: 048
     Dates: start: 20211008

REACTIONS (2)
  - Bone marrow failure [Fatal]
  - Pneumonia [Not Recovered/Not Resolved]

NARRATIVE: CASE EVENT DATE: 20211015
